FAERS Safety Report 6803864-7 (Version None)
Quarter: 2010Q2

REPORT INFORMATION
  Report Type: 
  Country: None (occurrence: None)
  Receive Date: 20100628
  Receipt Date: 20100617
  Transmission Date: 20101027
  Serious: Yes (Other)
  Sender: FDA-Public Use
  Company Number: US-BAXTER-2010BH016295

PATIENT
  Age: 78 Year
  Sex: Female

DRUGS (10)
  1. ENDOXAN BAXTER [Suspect]
     Indication: BREAST CANCER
     Route: 042
     Dates: start: 20100524, end: 20100524
  2. ENDOXAN BAXTER [Suspect]
     Route: 042
     Dates: start: 20100503, end: 20100503
  3. TAXOTERE [Suspect]
     Indication: BREAST CANCER
     Route: 041
     Dates: start: 20100524, end: 20100524
  4. TAXOTERE [Suspect]
     Route: 041
     Dates: start: 20100503, end: 20100503
  5. CIPRO [Suspect]
     Indication: PROPHYLAXIS
     Route: 065
  6. DEXAMETHASONE [Concomitant]
     Indication: PREMEDICATION
     Route: 065
  7. ALOXI [Concomitant]
     Indication: PREMEDICATION
     Route: 065
  8. EMEND [Concomitant]
     Indication: PREMEDICATION
     Route: 065
  9. NEULASTA [Concomitant]
     Indication: DRUG USE FOR UNKNOWN INDICATION
     Route: 065
  10. LISINOPRIL [Concomitant]
     Indication: DRUG USE FOR UNKNOWN INDICATION
     Route: 065

REACTIONS (2)
  - BLOOD CREATININE INCREASED [None]
  - RENAL FAILURE ACUTE [None]
